FAERS Safety Report 9124161 (Version 2)
Quarter: 2013Q1

REPORT INFORMATION
  Report Type: Spontaneous
  Country: GB (occurrence: GB)
  Receive Date: 20130227
  Receipt Date: 20130308
  Transmission Date: 20140127
  Serious: Yes (Other)
  Sender: FDA-Public Use
  Company Number: GB-PFIZER INC-2013069219

PATIENT
  Age: 61 Year
  Sex: Female
  Weight: 73.7 kg

DRUGS (7)
  1. ATORVASTATIN [Suspect]
     Dates: start: 20130131
  2. FLUOXETINE [Concomitant]
     Dates: start: 20121022
  3. OMEPRAZOLE [Concomitant]
     Dates: start: 20121122, end: 20121220
  4. NAPROXEN [Concomitant]
     Dates: start: 20121122, end: 20121206
  5. LIDOCAINE HYDROCHLORIDE [Concomitant]
     Dates: start: 20130104, end: 20130105
  6. KENALOG [Concomitant]
     Dates: start: 20130104, end: 20130105
  7. CANDESARTAN [Concomitant]
     Route: 048
     Dates: start: 20121022

REACTIONS (2)
  - Pruritus [Recovering/Resolving]
  - Myalgia [Recovering/Resolving]
